FAERS Safety Report 25066941 (Version 1)
Quarter: 2025Q1

REPORT INFORMATION
  Report Type: Report from Study
  Country: CA (occurrence: CA)
  Receive Date: 20250312
  Receipt Date: 20250312
  Transmission Date: 20250408
  Serious: Yes (Hospitalization)
  Sender: CHIESI
  Company Number: CA-CHIESI-2024CHF04268

PATIENT
  Age: 29 Year
  Sex: Female
  Weight: 79.5 kg

DRUGS (4)
  1. DEFERIPRONE [Suspect]
     Active Substance: DEFERIPRONE
     Indication: Sickle cell anaemia
     Route: 048
     Dates: start: 20240711
  2. DEFERIPRONE [Suspect]
     Active Substance: DEFERIPRONE
  3. DEFERIPRONE [Suspect]
     Active Substance: DEFERIPRONE
     Dosage: 2000 MILLIGRAM, BID
  4. FOSFOMYCIN [Concomitant]
     Active Substance: FOSFOMYCIN
     Indication: Product used for unknown indication

REACTIONS (25)
  - Influenza [Unknown]
  - Sickle cell anaemia with crisis [Unknown]
  - Sickle cell anaemia with crisis [Recovered/Resolved]
  - Sickle cell anaemia with crisis [Recovered/Resolved]
  - Product dose omission in error [Unknown]
  - Dysuria [Unknown]
  - Hot flush [Unknown]
  - Nasal congestion [Not Recovered/Not Resolved]
  - Pharyngeal swelling [Unknown]
  - Taste disorder [Unknown]
  - Pain [Unknown]
  - Urinary tract infection [Unknown]
  - Chills [Unknown]
  - Cough [Unknown]
  - Photosensitivity reaction [Unknown]
  - Fatigue [Unknown]
  - Pain [Unknown]
  - Malaise [Recovered/Resolved]
  - Oropharyngeal pain [Unknown]
  - Back pain [Unknown]
  - Headache [Unknown]
  - Nausea [Unknown]
  - Pyrexia [Unknown]
  - Off label use [Recovered/Resolved]
  - Off label use [Not Recovered/Not Resolved]

NARRATIVE: CASE EVENT DATE: 20240711
